FAERS Safety Report 4678130-9 (Version None)
Quarter: 2005Q2

REPORT INFORMATION
  Report Type: 
  Country: None (occurrence: None)
  Receive Date: 20050601
  Receipt Date: 20040705
  Transmission Date: 20051028
  Serious: Yes (Hospitalization)
  Sender: FDA-Public Use
  Company Number: MX-BOEHRINGER INGELHEIM PHARMACEUTICALS, INC.-2004-BP-05354MX

PATIENT
  Age: 51 Year
  Sex: Male

DRUGS (3)
  1. SECOTEX CAPSULES 0.4MG [Suspect]
     Indication: BLADDER NECK OBSTRUCTION
     Route: 048
     Dates: start: 20030811
  2. SECOTEX CAPSULES 0.4MG [Suspect]
     Indication: BENIGN PROSTATIC HYPERPLASIA
  3. NON SPECIFED ANTI-INFLAMMATORY DRUGS [Concomitant]
     Route: 048

REACTIONS (1)
  - DRUG INEFFECTIVE [None]
